FAERS Safety Report 16402854 (Version 1)
Quarter: 2019Q2

REPORT INFORMATION
  Report Type: Spontaneous
  Country: US (occurrence: US)
  Receive Date: 20190607
  Receipt Date: 20190607
  Transmission Date: 20190711
  Serious: No
  Sender: FDA-Public Use
  Company Number: US-PHARMING-PHAUS2019000364

PATIENT

DRUGS (8)
  1. RUCONEST [Suspect]
     Active Substance: HUMAN C1-ESTERASE INHIBITOR
     Indication: HEREDITARY ANGIOEDEMA
     Dosage: 3000 IU, PRN
     Route: 042
     Dates: start: 20190130
  2. BERINERT [Concomitant]
     Active Substance: HUMAN C1-ESTERASE INHIBITOR
  3. FIRAZYR [Concomitant]
     Active Substance: ICATIBANT ACETATE
  4. HEPARIN [Concomitant]
     Active Substance: HEPARIN SODIUM
  5. PRENATAL [Concomitant]
     Active Substance: VITAMINS
  6. HAEGARDA [Concomitant]
     Active Substance: HUMAN C1-ESTERASE INHIBITOR
  7. EPINEPHRINE. [Concomitant]
     Active Substance: EPINEPHRINE
  8. SODIUM CHLORIDE. [Concomitant]
     Active Substance: SODIUM CHLORIDE

REACTIONS (1)
  - Hereditary angioedema [Unknown]
